FAERS Safety Report 9967990 (Version 1)
Quarter: 2014Q1

REPORT INFORMATION
  Report Type: Report from Study
  Country: US (occurrence: US)
  Receive Date: 20140306
  Receipt Date: 20140306
  Transmission Date: 20141002
  Serious: No
  Sender: FDA-Public Use
  Company Number: US-ABBVIE-13P-163-1139830-00

PATIENT
  Sex: Female

DRUGS (11)
  1. HUMIRA [Suspect]
     Indication: RHEUMATOID ARTHRITIS
     Dates: start: 20130801
  2. LEFLUNOMIDE [Concomitant]
     Indication: RHEUMATOID ARTHRITIS
     Dosage: 20 MG DAILY
     Route: 048
  3. PREDNISONE [Concomitant]
     Indication: RHEUMATOID ARTHRITIS
     Dosage: 20 MG DAILY
     Route: 048
  4. SAVELLA [Concomitant]
     Indication: PRODUCT USED FOR UNKNOWN INDICATION
  5. NEURONTIN [Concomitant]
     Indication: RHEUMATOID ARTHRITIS
     Route: 048
  6. OPANA [Concomitant]
     Indication: RHEUMATOID ARTHRITIS
     Route: 048
  7. PRENATAL PLUS IRON [Concomitant]
     Indication: ANAEMIA
     Dosage: DAILY
     Route: 048
  8. VITAMIN D [Concomitant]
     Indication: VITAMIN D DEFICIENCY
     Route: 048
  9. XANAX [Concomitant]
     Indication: INSOMNIA
     Dosage: 1 MG AT BEDTIME
     Route: 048
  10. ATELVIA [Concomitant]
     Indication: OSTEOPOROSIS
     Route: 048
  11. SERTRALINE [Concomitant]
     Indication: FIBROMYALGIA
     Dosage: 50 MG DAILY
     Route: 048

REACTIONS (2)
  - Rash [Not Recovered/Not Resolved]
  - Diarrhoea [Not Recovered/Not Resolved]
